FAERS Safety Report 4946581-0 (Version None)
Quarter: 2006Q1

REPORT INFORMATION
  Report Type: 
  Country: None (occurrence: None)
  Receive Date: 20060317
  Receipt Date: 20060311
  Transmission Date: 20060701
  Serious: Yes (Other)
  Sender: FDA-Public Use
  Company Number: GB-GLAXOSMITHKLINE-B0415535A

PATIENT
  Age: 38 Year
  Sex: Female

DRUGS (5)
  1. AMOXICILLIN [Suspect]
     Dosage: 500MG THREE TIMES PER DAY
     Route: 048
  2. WARFARIN [Suspect]
     Route: 065
  3. CLINDAMYCIN [Suspect]
     Dosage: 600MG PER DAY
     Route: 048
  4. PERINDOPRIL [Concomitant]
     Dosage: 2MG PER DAY
     Route: 048
  5. METOPROLOL [Concomitant]
     Dosage: 50MG THREE TIMES PER DAY
     Route: 048

REACTIONS (1)
  - INTERNATIONAL NORMALISED RATIO INCREASED [None]
